FAERS Safety Report 4524659-3 (Version None)
Quarter: 2004Q4

REPORT INFORMATION
  Report Type: 
  Country: None (occurrence: None)
  Receive Date: 20041211
  Receipt Date: 20041130
  Transmission Date: 20050328
  Serious: No
  Sender: FDA-Public Use
  Company Number: US-MERCK-0412USA00070

PATIENT
  Sex: Male

DRUGS (7)
  1. ZOCOR [Suspect]
     Indication: BLOOD CHOLESTEROL INCREASED
     Route: 048
     Dates: start: 20021001, end: 20030808
  2. ASPIRIN [Concomitant]
     Route: 065
  3. VASOTEC [Concomitant]
     Route: 065
  4. CELEBREX [Concomitant]
     Route: 065
  5. [THERAPY UNSPECIFIED] [Concomitant]
     Route: 065
  6. [THERAPY UNSPECIFIED] [Concomitant]
     Route: 065
  7. LIPITOR [Concomitant]
     Route: 065
     Dates: start: 20030801, end: 20040617

REACTIONS (2)
  - HIGH DENSITY LIPOPROTEIN DECREASED [None]
  - MYALGIA [None]
